FAERS Safety Report 9959009 (Version 1)
Quarter: 2014Q1

REPORT INFORMATION
  Report Type: Report from Study
  Country: US (occurrence: US)
  Receive Date: 20140305
  Receipt Date: 20140305
  Transmission Date: 20141002
  Serious: No
  Sender: FDA-Public Use
  Company Number: US-ABBVIE-13P-163-1102416-00

PATIENT
  Age: 72 Year
  Sex: Female
  Weight: 77.63 kg

DRUGS (9)
  1. HUMIRA [Suspect]
     Indication: RHEUMATOID ARTHRITIS
     Route: 058
     Dates: start: 20121224, end: 20130429
  2. SALINE SPRAY [Concomitant]
     Indication: SINUS DISORDER
  3. PREDNISONE [Concomitant]
     Indication: RHEUMATOID ARTHRITIS
  4. FOLIC ACID [Concomitant]
     Indication: RHEUMATOID ARTHRITIS
  5. HYDROXYCLOROQUINE [Concomitant]
     Indication: RHEUMATOID ARTHRITIS
  6. FISH OIL [Concomitant]
     Indication: SUPPLEMENTATION THERAPY
  7. METHOTREXATE [Concomitant]
     Indication: RHEUMATOID ARTHRITIS
  8. CALCIUM [Concomitant]
     Indication: MINERAL SUPPLEMENTATION
  9. VITAMIN D [Concomitant]
     Indication: VITAMIN D DEFICIENCY

REACTIONS (3)
  - Upper-airway cough syndrome [Recovering/Resolving]
  - Respiratory tract infection [Recovered/Resolved]
  - Sinusitis [Recovered/Resolved]
